FAERS Safety Report 23863434 (Version 1)
Quarter: 2024Q2

REPORT INFORMATION
  Report Type: Report from Study
  Country: GB (occurrence: None)
  Receive Date: 20240516
  Receipt Date: 20240516
  Transmission Date: 20240716
  Serious: Yes (Death)
  Sender: FDA-Public Use
  Company Number: 2024A111418

PATIENT

DRUGS (1)
  1. EXENATIDE [Suspect]
     Active Substance: EXENATIDE
     Indication: Type 2 diabetes mellitus

REACTIONS (1)
  - Cardiac disorder [Fatal]
